FAERS Safety Report 7595131-1 (Version None)
Quarter: 2011Q3

REPORT INFORMATION
  Report Type: 
  Country: None (occurrence: None)
  Receive Date: 20110707
  Receipt Date: 20110629
  Transmission Date: 20111222
  Serious: Yes (Death, Life-Threatening, Hospitalization, Other)
  Sender: FDA-Public Use
  Company Number: BR-BAYER-2011-004648

PATIENT
  Age: 73 Year
  Sex: Male
  Weight: 77 kg

DRUGS (34)
  1. SORAFENIB (RAF KINASE INHIBITOR) [Suspect]
     Dosage: 0
     Dates: start: 20100925, end: 20101004
  2. NORFLOXACIN [Concomitant]
     Dosage: 400 MG, UNK
     Dates: start: 20110321
  3. PROPOFOL [Concomitant]
     Indication: SEDATION
     Dosage: 200 MG, UNK
     Dates: start: 20110320, end: 20110320
  4. PLACEBO (12917) [Suspect]
     Indication: HEPATIC NEOPLASM MALIGNANT
     Dosage: 150 MG, QD
     Route: 048
     Dates: start: 20100914, end: 20100924
  5. PLACEBO (12917) [Suspect]
     Dosage: 0 UNK, UNK
     Route: 048
     Dates: start: 20100925, end: 20101004
  6. SORAFENIB (RAF KINASE INHIBITOR) [Suspect]
     Dosage: 400 MG, BID
     Route: 048
     Dates: start: 20101005, end: 20101010
  7. SORAFENIB (RAF KINASE INHIBITOR) [Suspect]
     Dosage: 400 MG, QD
     Route: 048
     Dates: start: 20101220, end: 20110116
  8. SORAFENIB (RAF KINASE INHIBITOR) [Suspect]
     Dosage: 400 MG, QD
     Route: 048
     Dates: start: 20110117, end: 20110206
  9. PLACEBO (12917) [Suspect]
     Dosage: 100 MG, QD
     Route: 048
     Dates: start: 20101220, end: 20110116
  10. SORAFENIB (RAF KINASE INHIBITOR) [Suspect]
     Dosage: 400 MG, BID
     Route: 048
     Dates: start: 20110207, end: 20110227
  11. NORFLOXACIN [Concomitant]
     Indication: PROPHYLAXIS
     Dosage: 400 MG, UNK
     Dates: start: 20110319
  12. PLACEBO (12917) [Suspect]
     Dosage: 100 MG, QD
     Route: 048
     Dates: start: 20101206, end: 20101219
  13. PLACEBO (12917) [Suspect]
     Dosage: 100 MG, QD
     Route: 048
     Dates: start: 20110207, end: 20110228
  14. PLACEBO (12917) [Suspect]
     Dosage: 100 MG, QD
     Route: 048
     Dates: start: 20110301, end: 20110309
  15. SORAFENIB (RAF KINASE INHIBITOR) [Suspect]
     Dosage: 400 MG, QD
     Route: 048
     Dates: start: 20101025, end: 20101115
  16. SORAFENIB (RAF KINASE INHIBITOR) [Suspect]
     Dosage: 400 MG, QD
     Route: 048
     Dates: start: 20101116, end: 20101205
  17. SORAFENIB (RAF KINASE INHIBITOR) [Suspect]
     Dosage: 400 MG, QD
     Route: 048
     Dates: start: 20110309, end: 20110309
  18. LUFTAL [Concomitant]
     Indication: ABDOMINAL PAIN UPPER
     Dosage: 125MG - 375 MG PRN
     Dates: start: 20100909
  19. TRAMADOL HYDROCHLORIDE [Concomitant]
     Indication: ABDOMINAL PAIN UPPER
     Dosage: 1 DF, UNK
     Dates: start: 20100908
  20. ULTRAVIST 150 [Concomitant]
     Indication: DIAGNOSTIC PROCEDURE
     Dosage: 1.5ML/KG
     Dates: start: 20100908
  21. RELIEV [Concomitant]
     Indication: DIAGNOSTIC PROCEDURE
     Dosage: 14 G, UNK
     Dates: start: 20100908
  22. NORFLOXACIN [Concomitant]
     Dosage: 400 MG, UNK
     Dates: start: 20110325, end: 20110325
  23. NORFLOXACIN [Concomitant]
     Dosage: 400 MG, UNK
     Dates: start: 20110328, end: 20110328
  24. PLACEBO (12917) [Suspect]
     Dosage: 100 MG, QD
     Route: 048
     Dates: start: 20101025, end: 20101115
  25. SORAFENIB (RAF KINASE INHIBITOR) [Suspect]
     Dosage: 400 MG, QD
     Route: 048
     Dates: start: 20100924, end: 20100924
  26. PLACEBO (12917) [Suspect]
     Dosage: 100 MG, QD
     Route: 048
     Dates: start: 20110117, end: 20110206
  27. SORAFENIB (RAF KINASE INHIBITOR) [Suspect]
     Indication: HEPATIC NEOPLASM MALIGNANT
     Dosage: 400 MG, BID
     Route: 048
     Dates: start: 20100914, end: 20100923
  28. SORAFENIB (RAF KINASE INHIBITOR) [Suspect]
     Dosage: 400 MG, QD
     Route: 048
     Dates: start: 20101011, end: 20101024
  29. SORAFENIB (RAF KINASE INHIBITOR) [Suspect]
     Dosage: 400 MG, QD
     Route: 048
     Dates: start: 20101206, end: 20101219
  30. PLACEBO (12917) [Suspect]
     Dosage: 100 MG, QD
     Route: 048
     Dates: start: 20101005, end: 20101024
  31. PLACEBO (12917) [Suspect]
     Dosage: 100 MG, QD
     Route: 048
     Dates: start: 20101116, end: 20101205
  32. DIMETICONE [Concomitant]
     Indication: ABDOMINAL PAIN UPPER
     Dosage: 30 DROPS
     Dates: start: 20110411, end: 20110422
  33. SORAFENIB (RAF KINASE INHIBITOR) [Suspect]
     Dosage: 400 MG, BID
     Route: 048
     Dates: start: 20110228, end: 20110308
  34. NORFLOXACIN [Concomitant]
     Dosage: 800 MG, UNK
     Dates: start: 20110322, end: 20110327

REACTIONS (9)
  - HEPATIC FAILURE [None]
  - UPPER GASTROINTESTINAL HAEMORRHAGE [None]
  - INTERSTITIAL LUNG DISEASE [None]
  - STAPHYLOCOCCAL INFECTION [None]
  - ENDOCARDITIS [None]
  - PNEUMONIA BACTERIAL [None]
  - LOWER GASTROINTESTINAL HAEMORRHAGE [None]
  - ENTEROBACTER INFECTION [None]
  - HEPATIC ENCEPHALOPATHY [None]
